FAERS Safety Report 7870118-X (Version None)
Quarter: 2011Q4

REPORT INFORMATION
  Report Type: 
  Country: None (occurrence: None)
  Receive Date: 20111028
  Receipt Date: 20110114
  Transmission Date: 20120403
  Serious: No
  Sender: FDA-Public Use
  Company Number: US-AMGEN-USASP2010011033

PATIENT
  Age: 60 Year
  Sex: Female
  Weight: 75.283 kg

DRUGS (4)
  1. ZYPREXA [Concomitant]
     Dosage: 10 MG, QD
     Route: 048
     Dates: start: 20000101
  2. ENBREL [Suspect]
     Indication: RHEUMATOID ARTHRITIS
     Dosage: 50 MG, QWK
     Dates: start: 20080101
  3. OXYCODONE HCL [Concomitant]
     Indication: PAIN
     Dosage: 1.25 MG, Q8H
     Route: 048
     Dates: start: 20101001
  4. IMURAN [Concomitant]
     Dosage: 50 MG, TID
     Dates: start: 19910101

REACTIONS (9)
  - MUSCULOSKELETAL PAIN [None]
  - SINUSITIS [None]
  - NASOPHARYNGITIS [None]
  - LOWER RESPIRATORY TRACT INFECTION [None]
  - RHEUMATOID ARTHRITIS [None]
  - UPPER RESPIRATORY TRACT INFECTION [None]
  - ARTHRALGIA [None]
  - OROPHARYNGEAL PAIN [None]
  - MUSCULAR WEAKNESS [None]
